FAERS Safety Report 7223831-1 (Version None)
Quarter: 2011Q1

REPORT INFORMATION
  Report Type: 
  Country: None (occurrence: None)
  Receive Date: 20110112
  Receipt Date: 20101220
  Transmission Date: 20110831
  Serious: No
  Sender: FDA-Public Use
  Company Number: US-ALLERGAN-1016550US

PATIENT
  Age: 69 Year
  Sex: Female

DRUGS (5)
  1. RESTASIS [Suspect]
     Indication: SYSTEMIC LUPUS ERYTHEMATOSUS
  2. RESTASIS [Suspect]
     Indication: DRY EYE
     Dosage: 1 GTT, BID
     Route: 047
     Dates: start: 20101210
  3. REFRESH                            /00007001/ [Concomitant]
     Indication: DRY EYE
     Dosage: UNK
     Route: 047
  4. RESTASIS [Suspect]
     Indication: SJOGREN'S SYNDROME
  5. REFRESH FREE [Concomitant]
     Indication: DRY EYE
     Dosage: UNK
     Route: 047

REACTIONS (3)
  - EYE PAIN [None]
  - FOREIGN BODY SENSATION IN EYES [None]
  - EYE IRRITATION [None]
